FAERS Safety Report 5981445-5 (Version None)
Quarter: 2008Q4

REPORT INFORMATION
  Report Type: 
  Country: None (occurrence: None)
  Receive Date: 20081205
  Receipt Date: 20081127
  Transmission Date: 20090506
  Serious: Yes (Hospitalization)
  Sender: FDA-Public Use
  Company Number: FR-ELI_LILLY_AND_COMPANY-FR200811006150

PATIENT
  Sex: Male

DRUGS (12)
  1. CIALIS [Suspect]
     Dosage: 1 BOX OF 8 TABLETS/ 1 TO 2 MONTHS, UNKNOWN
     Route: 048
  2. HUMIRA [Concomitant]
     Indication: ANKYLOSING SPONDYLITIS
     Dosage: 40 MG, EVERY OTHER WEEK
  3. METHOTREXATE [Concomitant]
     Indication: ANKYLOSING SPONDYLITIS
     Dosage: UNK, UNKNOWN
     Route: 048
  4. YOHIMBINE ^HOUDE^ [Concomitant]
     Dosage: UNK, UNKNOWN
     Route: 048
  5. OLMETEC [Concomitant]
     Dosage: UNK, UNKNOWN
     Route: 065
  6. CADUET [Concomitant]
     Dosage: UNK, UNKNOWN
     Route: 065
     Dates: start: 20070430
  7. ZOLPIDEM [Concomitant]
     Dosage: UNK, UNKNOWN
     Route: 065
  8. ASPEGIC 325 [Concomitant]
     Dosage: 100 MG, DAILY (1/D)
     Route: 065
  9. SKENAN [Concomitant]
     Dosage: UNK, UNKNOWN
     Route: 065
  10. DIANTALVIC [Concomitant]
     Dosage: UNK, UNKNOWN
     Route: 065
  11. CORTANCYL [Concomitant]
     Dosage: UNK, UNKNOWN
     Route: 065
  12. TOPALGIC [Concomitant]
     Dosage: UNK, AS NEEDED
     Route: 065

REACTIONS (3)
  - ISCHAEMIC STROKE [None]
  - TENOSYNOVITIS [None]
  - VENOUS THROMBOSIS LIMB [None]
